FAERS Safety Report 17221479 (Version 1)
Quarter: 2020Q1

REPORT INFORMATION
  Report Type: Report from Study
  Country: DE (occurrence: DE)
  Receive Date: 20200101
  Receipt Date: 20200101
  Transmission Date: 20200409
  Serious: Yes (Other)
  Sender: FDA-Public Use
  Company Number: DE-ROCHE-2503517

PATIENT
  Age: 70 Year
  Sex: Female
  Weight: 63 kg

DRUGS (51)
  1. RITUXIMAB. [Suspect]
     Active Substance: RITUXIMAB
     Indication: DIFFUSE LARGE B-CELL LYMPHOMA
     Dosage: 640 MG, UNK
     Route: 041
     Dates: start: 20190424, end: 20190424
  2. RITUXIMAB. [Suspect]
     Active Substance: RITUXIMAB
     Dosage: 640 MG, UNK
     Route: 041
     Dates: start: 20190403, end: 20190403
  3. VINCRISTINE [Suspect]
     Active Substance: VINCRISTINE
     Dosage: 1 MG, UNK
     Route: 041
     Dates: start: 20190131, end: 20190131
  4. PREDNISONE. [Suspect]
     Active Substance: PREDNISONE
     Indication: DIFFUSE LARGE B-CELL LYMPHOMA
     Dosage: 500 MG, UNK
     Route: 048
     Dates: start: 20190313, end: 20190317
  5. DOXORUBICIN [Suspect]
     Active Substance: DOXORUBICIN
     Dosage: 85 MG
     Route: 041
     Dates: start: 20190109, end: 20190109
  6. PARACETAMOL [Concomitant]
     Active Substance: ACETAMINOPHEN
     Indication: PRODUCT USED FOR UNKNOWN INDICATION
     Dosage: UNK
     Route: 048
     Dates: start: 20190109, end: 20190605
  7. PREDNISOLONE. [Concomitant]
     Active Substance: PREDNISOLONE
     Indication: RHEUMATOID ARTHRITIS
     Dosage: UNK
     Route: 048
     Dates: start: 20000101
  8. VINCRISTINE [Suspect]
     Active Substance: VINCRISTINE
     Indication: DIFFUSE LARGE B-CELL LYMPHOMA
     Dosage: 1 UNK
     Route: 041
     Dates: start: 20190109, end: 20190109
  9. PREDNISONE. [Suspect]
     Active Substance: PREDNISONE
     Dosage: 500 MG, UNK
     Route: 048
     Dates: start: 20190424, end: 20190428
  10. CYCLOPHOSPHAMIDE. [Suspect]
     Active Substance: CYCLOPHOSPHAMIDE
     Dosage: 1290 MG, UNK
     Route: 041
     Dates: start: 20190110, end: 20190110
  11. CYCLOPHOSPHAMIDE. [Suspect]
     Active Substance: CYCLOPHOSPHAMIDE
     Dosage: 1290 MG, UNK
     Route: 041
     Dates: start: 20190424, end: 20190424
  12. DOXORUBICIN [Suspect]
     Active Substance: DOXORUBICIN
     Dosage: 85 MG
     Route: 041
     Dates: start: 20190130, end: 20190130
  13. DOXORUBICIN [Suspect]
     Active Substance: DOXORUBICIN
     Dosage: 85 MG, UNK
     Route: 041
     Dates: start: 20190403, end: 20190403
  14. MESNA. [Concomitant]
     Active Substance: MESNA
     Indication: PRODUCT USED FOR UNKNOWN INDICATION
     Dosage: UNK
     Route: 048
     Dates: start: 20190109, end: 20190424
  15. DEKRISTOL [Concomitant]
     Active Substance: CHOLECALCIFEROL
     Indication: GENERAL PHYSICAL HEALTH DETERIORATION
     Dosage: UNK
     Route: 048
     Dates: start: 20190312
  16. QUENSYL [Concomitant]
     Active Substance: HYDROXYCHLOROQUINE
     Indication: RHEUMATOID ARTHRITIS
     Dosage: UNK
     Route: 048
     Dates: start: 20181212, end: 20190107
  17. RITUXIMAB. [Suspect]
     Active Substance: RITUXIMAB
     Dosage: 640 MG, UNK
     Route: 041
     Dates: start: 20190109, end: 20190109
  18. VINCRISTINE [Suspect]
     Active Substance: VINCRISTINE
     Dosage: 1 MG, UNK
     Route: 041
     Dates: start: 20190403, end: 20190403
  19. VINCRISTINE [Suspect]
     Active Substance: VINCRISTINE
     Dosage: 1 MG, UNK
     Route: 041
     Dates: start: 20190220, end: 20190220
  20. VINCRISTINE [Suspect]
     Active Substance: VINCRISTINE
     Dosage: 1 MG
     Route: 041
     Dates: start: 20190130, end: 20190130
  21. PREDNISONE. [Suspect]
     Active Substance: PREDNISONE
     Dosage: 500 MG, UNK
     Route: 048
     Dates: start: 20190220, end: 20190224
  22. PREDNISONE. [Suspect]
     Active Substance: PREDNISONE
     Dosage: 500 MG, UNK
     Route: 048
     Dates: start: 20190109, end: 20190113
  23. CYCLOPHOSPHAMIDE. [Suspect]
     Active Substance: CYCLOPHOSPHAMIDE
     Indication: DIFFUSE LARGE B-CELL LYMPHOMA
     Dosage: 1290 MG, UNK
     Route: 041
     Dates: start: 20190220, end: 20190220
  24. DOXORUBICIN [Suspect]
     Active Substance: DOXORUBICIN
     Indication: DIFFUSE LARGE B-CELL LYMPHOMA
     Dosage: 85 MG, UNK
     Route: 041
     Dates: start: 20190424, end: 20190424
  25. RITUXIMAB. [Suspect]
     Active Substance: RITUXIMAB
     Dosage: 640 MG, UNK
     Route: 041
     Dates: start: 20190313, end: 20190313
  26. PREDNISONE. [Suspect]
     Active Substance: PREDNISONE
     Dosage: 500 MG, UNK
     Route: 048
     Dates: start: 20190130, end: 20190203
  27. PREDNISONE. [Suspect]
     Active Substance: PREDNISONE
     Dosage: 500 MG, UNK
     Route: 048
     Dates: start: 20190403, end: 20190407
  28. HYDROXYCHLOROQUINE [Concomitant]
     Active Substance: HYDROXYCHLOROQUINE
     Indication: RHEUMATOID ARTHRITIS
     Dosage: UNK
     Route: 048
  29. GRANISETRON [Concomitant]
     Active Substance: GRANISETRON
     Indication: PRODUCT USED FOR UNKNOWN INDICATION
     Dosage: UNK
     Route: 065
     Dates: start: 20190109, end: 20190424
  30. RITUXIMAB. [Suspect]
     Active Substance: RITUXIMAB
     Dosage: 640 MG, UNK
     Route: 041
     Dates: start: 20190515, end: 20190515
  31. VINCRISTINE [Suspect]
     Active Substance: VINCRISTINE
     Dosage: 1 MG, UNK
     Route: 041
     Dates: start: 20190313, end: 20190313
  32. CYCLOPHOSPHAMIDE. [Suspect]
     Active Substance: CYCLOPHOSPHAMIDE
     Dosage: 1290 MG, UNK
     Route: 041
     Dates: start: 20190403, end: 20190403
  33. CYCLOPHOSPHAMIDE. [Suspect]
     Active Substance: CYCLOPHOSPHAMIDE
     Dosage: 1290 MG
     Route: 041
     Dates: start: 20190130, end: 20190130
  34. CYCLOPHOSPHAMIDE. [Suspect]
     Active Substance: CYCLOPHOSPHAMIDE
     Dosage: 1290 MG, UNK
     Route: 041
     Dates: start: 20190313, end: 20190313
  35. DOXORUBICIN [Suspect]
     Active Substance: DOXORUBICIN
     Dosage: 85 MG, UNK
     Route: 041
     Dates: start: 20190220, end: 20190220
  36. LANTAREL [Concomitant]
     Active Substance: METHOTREXATE SODIUM
     Indication: RHEUMATOID ARTHRITIS
     Dosage: UNK
     Route: 058
     Dates: start: 20000101
  37. RITUXIMAB. [Suspect]
     Active Substance: RITUXIMAB
     Dosage: 640 MG, UNK
     Route: 041
     Dates: start: 20190605, end: 20190605
  38. RITUXIMAB. [Suspect]
     Active Substance: RITUXIMAB
     Dosage: 640 MG, UNK
     Route: 041
     Dates: start: 20190130, end: 20190130
  39. CYCLOPHOSPHAMIDE. [Suspect]
     Active Substance: CYCLOPHOSPHAMIDE
     Dosage: 1290 MG, UNK
     Route: 041
     Dates: start: 20190131, end: 20190131
  40. DOXORUBICIN [Suspect]
     Active Substance: DOXORUBICIN
     Dosage: 85 MG, UNK
     Route: 041
     Dates: start: 20190110, end: 20190110
  41. DOXORUBICIN [Suspect]
     Active Substance: DOXORUBICIN
     Dosage: 85 MG, UNK
     Route: 041
     Dates: start: 20190131, end: 20190131
  42. PANTOPRAZOLE [Concomitant]
     Active Substance: PANTOPRAZOLE
     Indication: PROPHYLAXIS
     Dosage: UNK
     Route: 048
     Dates: start: 20190107, end: 20190611
  43. VINCRISTINE [Suspect]
     Active Substance: VINCRISTINE
     Dosage: 1 MG, UNK
     Route: 041
     Dates: start: 20190110, end: 20190110
  44. VINCRISTINE [Suspect]
     Active Substance: VINCRISTINE
     Dosage: 1 MG, UNK
     Route: 041
     Dates: start: 20190424, end: 20190424
  45. CYCLOPHOSPHAMIDE. [Suspect]
     Active Substance: CYCLOPHOSPHAMIDE
     Dosage: UNK
     Route: 065
  46. CYCLOPHOSPHAMIDE. [Suspect]
     Active Substance: CYCLOPHOSPHAMIDE
     Dosage: 1290 MG
     Route: 041
     Dates: start: 20190109, end: 20190109
  47. ACIC [ACICLOVIR] [Concomitant]
     Active Substance: ACYCLOVIR
     Dosage: UNK
     Route: 048
     Dates: start: 20190312, end: 20190607
  48. ELIQUIS [Concomitant]
     Active Substance: APIXABAN
     Indication: GENERAL PHYSICAL HEALTH DETERIORATION
     Dosage: UNK
     Route: 065
     Dates: start: 20190808
  49. RITUXIMAB. [Suspect]
     Active Substance: RITUXIMAB
     Dosage: 640 MG, UNK
     Route: 041
     Dates: start: 20190220, end: 20190220
  50. DOXORUBICIN [Suspect]
     Active Substance: DOXORUBICIN
     Dosage: 85 MG, UNK
     Route: 041
     Dates: start: 20190313, end: 20190313
  51. COTRIM FORTE [Concomitant]
     Active Substance: SULFAMETHOXAZOLE\TRIMETHOPRIM
     Indication: GENERAL PHYSICAL HEALTH DETERIORATION
     Dosage: UNK
     Route: 065
     Dates: start: 20190312, end: 20190607

REACTIONS (5)
  - Cardiomyopathy [Recovered/Resolved]
  - Vena cava thrombosis [Recovered/Resolved]
  - Diastolic dysfunction [Not Recovered/Not Resolved]
  - Cardiac sarcoidosis [Recovered/Resolved]
  - Rash [Recovered/Resolved]

NARRATIVE: CASE EVENT DATE: 20190320
